FAERS Safety Report 4620838-5 (Version None)
Quarter: 2005Q1

REPORT INFORMATION
  Report Type: 
  Country: None (occurrence: None)
  Receive Date: 20050325
  Receipt Date: 20050318
  Transmission Date: 20050727
  Serious: Yes (Death, Hospitalization, Other)
  Sender: FDA-Public Use
  Company Number: 163-20785-03080454

PATIENT
  Age: 72 Year
  Sex: Female

DRUGS (3)
  1. THALOMID [Suspect]
     Indication: MULTIPLE MYELOMA
     Dosage: 100 MG, QD, ORAL
     Route: 048
     Dates: start: 20030519, end: 20030101
  2. THALOMID [Suspect]
     Indication: MULTIPLE MYELOMA
     Dosage: 100 MG, QD, ORAL
     Route: 048
     Dates: start: 20041115, end: 20050110
  3. DEXAMETHASONE [Suspect]
     Indication: MULTIPLE MYELOMA
     Dosage: ORAL
     Route: 048
     Dates: start: 20030519

REACTIONS (15)
  - ASTHENIA [None]
  - CARDIAC FAILURE CONGESTIVE [None]
  - DEEP VEIN THROMBOSIS [None]
  - DISEASE PROGRESSION [None]
  - DYSPNOEA [None]
  - DYSPNOEA EXERTIONAL [None]
  - LOSS OF CONSCIOUSNESS [None]
  - MALIGNANT NEOPLASM PROGRESSION [None]
  - MULTIPLE MYELOMA [None]
  - OEDEMA [None]
  - PULMONARY EMBOLISM [None]
  - PULMONARY HYPERTENSION [None]
  - PULMONARY OEDEMA [None]
  - RENAL FAILURE [None]
  - TREMOR [None]
